FAERS Safety Report 5326704-4 (Version None)
Quarter: 2007Q2

REPORT INFORMATION
  Report Type: 
  Country: None (occurrence: None)
  Receive Date: 20070516
  Receipt Date: 20070510
  Transmission Date: 20071010
  Serious: Yes (Hospitalization, Disabling)
  Sender: FDA-Public Use
  Company Number: US-BOEHRINGER INGELHEIM PHARMACEUTICALS, INC.-2007-BP-03432BP

PATIENT
  Age: 74 Year
  Sex: Female
  Weight: 60 kg

DRUGS (9)
  1. APTIVUS/RITONAVIR CAPSULES [Suspect]
     Indication: HIV INFECTION
     Dosage: TPV/RTV 500MG/200MG BID
     Route: 048
     Dates: start: 20040205, end: 20070130
  2. APTIVUS/RITONAVIR CAPSULES [Suspect]
     Indication: ACQUIRED IMMUNODEFICIENCY SYNDROME
  3. FUZEON [Suspect]
     Indication: HIV INFECTION
     Route: 058
     Dates: start: 20040123, end: 20070130
  4. VIREAD [Concomitant]
     Indication: HIV INFECTION
     Route: 048
     Dates: start: 20040123, end: 20070130
  5. ZERIT [Concomitant]
     Indication: HIV INFECTION
     Route: 048
     Dates: start: 20040123, end: 20070130
  6. VIDEX [Concomitant]
     Indication: HIV INFECTION
     Route: 048
     Dates: start: 20040123, end: 20070130
  7. PROCARDIA XL [Concomitant]
     Route: 048
     Dates: start: 19960101
  8. LASIX [Concomitant]
     Dates: start: 20060120
  9. K-DUR 10 [Concomitant]
     Dates: start: 20060120

REACTIONS (9)
  - ABASIA [None]
  - ANOREXIA [None]
  - ASTHENIA [None]
  - DEHYDRATION [None]
  - DYSPHAGIA [None]
  - EATON-LAMBERT SYNDROME [None]
  - EYELID DISORDER [None]
  - EYELID PTOSIS [None]
  - FATIGUE [None]
